FAERS Safety Report 11813607 (Version 2)
Quarter: 2016Q1

REPORT INFORMATION
  Report Type: Spontaneous
  Country: US (occurrence: US)
  Receive Date: 20151209
  Receipt Date: 20160105
  Transmission Date: 20160525
  Serious: Yes (Death)
  Sender: FDA-Public Use
  Company Number: US-009507513-1512USA004452

PATIENT
  Sex: Female

DRUGS (3)
  1. EMEND [Suspect]
     Active Substance: APREPITANT
     Dosage: 80 MG, ONCE (DAY 2) (TRIPACK: 125 MG ON DAY 1, 80 MG ON DAYS 2 AND 3)
     Route: 048
  2. EMEND [Suspect]
     Active Substance: APREPITANT
     Indication: PRODUCT USED FOR UNKNOWN INDICATION
     Dosage: 125 MG, ONCE (DAY 1) (TRIPACK: 125 MG ON DAY 1, 80 MG ON DAYS 2 AND 3)
     Route: 048
  3. EMEND [Suspect]
     Active Substance: APREPITANT
     Dosage: 80 MG, ONCE (DAY 3) (TRIPACK: 125 MG ON DAY 1, 80 MG ON DAYS 2 AND 3)
     Route: 048

REACTIONS (1)
  - Death [Fatal]
